FAERS Safety Report 18106999 (Version 1)
Quarter: 2020Q3

REPORT INFORMATION
  Report Type: Spontaneous
  Country: US (occurrence: US)
  Receive Date: 20200803
  Receipt Date: 20200803
  Transmission Date: 20201103
  Serious: Yes (Hospitalization)
  Sender: FDA-Public Use
  Company Number: US-PFIZER INC-2020292140

PATIENT
  Sex: Female

DRUGS (2)
  1. PLAQUENIL [Suspect]
     Active Substance: HYDROXYCHLOROQUINE SULFATE
     Dosage: UNK
  2. METHOTREXATE SODIUM. [Suspect]
     Active Substance: METHOTREXATE SODIUM
     Dosage: UNK

REACTIONS (10)
  - Swollen tongue [Unknown]
  - Skin haemorrhage [Unknown]
  - Hypertension [Unknown]
  - Lethargy [Unknown]
  - Fatigue [Unknown]
  - Urticaria [Unknown]
  - Epistaxis [Unknown]
  - Illness [Unknown]
  - Speech disorder [Unknown]
  - Pruritus [Unknown]
